FAERS Safety Report 8776815 (Version 1)
Quarter: 2012Q4

REPORT INFORMATION
  Report Type: 
  Country: EG (occurrence: EG)
  Receive Date: 20120910
  Receipt Date: 20120910
  Transmission Date: 20130627
  Serious: Yes (Other)
  Sender: FDA-Public Use
  Company Number: EG-JNJFOC-20120900089

PATIENT

DRUGS (8)
  1. DOXORUBICIN HYDROCHLORIDE (CAELYX) [Suspect]
     Indication: FOETAL EXPOSURE DURING PREGNANCY
     Dosage: on day 1 and day 15
     Route: 064
  2. DOXORUBICIN HYDROCHLORIDE (CAELYX) [Suspect]
     Indication: FOETAL EXPOSURE DURING PREGNANCY
     Dosage: day 1, 2 cycles to be repeated every 3 weeks
     Route: 064
  3. ENDOXAN [Suspect]
     Indication: FOETAL EXPOSURE DURING PREGNANCY
     Dosage: day 1, 2 cycles to be repeated every 3 weeks
     Route: 064
  4. PACLITAXEL [Suspect]
     Indication: FOETAL EXPOSURE DURING PREGNANCY
     Dosage: 4 cycles to be repeated every 3 weeks
     Route: 064
  5. G-CSF [Suspect]
     Indication: FOETAL EXPOSURE DURING PREGNANCY
     Route: 064
  6. DOCETAXEL [Suspect]
     Indication: FOETAL EXPOSURE DURING PREGNANCY
     Dosage: 6 cycles
     Route: 064
  7. BLEOMYCIN [Suspect]
     Indication: FOETAL EXPOSURE DURING PREGNANCY
     Dosage: 5-10mg/m2 on day 1 and 15
     Route: 064
  8. VINBLASTINE [Suspect]
     Indication: FOETAL EXPOSURE DURING PREGNANCY
     Dosage: on day 1 and 15
     Route: 064

REACTIONS (4)
  - Low birth weight baby [Unknown]
  - Apgar score low [Unknown]
  - Foetal exposure during pregnancy [None]
  - Foetal exposure during pregnancy [None]
